FAERS Safety Report 20015844 (Version 1)
Quarter: 2021Q4

REPORT INFORMATION
  Report Type: Spontaneous
  Country: US (occurrence: None)
  Receive Date: 20211101
  Receipt Date: 20211101
  Transmission Date: 20220303
  Serious: No
  Sender: FDA-Public Use
  Company Number: None

PATIENT
  Age: 63 Year
  Sex: Male

DRUGS (10)
  1. REVLIMID [Suspect]
     Active Substance: LENALIDOMIDE
     Indication: Follicular lymphoma
     Dosage: OTHER FREQUENCY : QD X21/28D;?
     Route: 048
     Dates: start: 20211004
  2. FOLIC ACID [Concomitant]
     Active Substance: FOLIC ACID
  3. ALLOPUARINOL [Concomitant]
  4. GLIPIZIDE [Concomitant]
     Active Substance: GLIPIZIDE
  5. ROSUVASTATIN [Concomitant]
     Active Substance: ROSUVASTATIN
  6. L-THYRYROXINE 125MCG [Concomitant]
  7. MIRTAZAPINE [Suspect]
     Active Substance: MIRTAZAPINE
  8. VITAMINS [Concomitant]
     Active Substance: VITAMINS
  9. PARADAXA (RIVAROXABAN) 15 MG [Concomitant]
  10. ASA 81MG/D [Concomitant]

REACTIONS (1)
  - Venous thrombosis limb [None]

NARRATIVE: CASE EVENT DATE: 20211028
